FAERS Safety Report 11107409 (Version 1)
Quarter: 2015Q2

REPORT INFORMATION
  Report Type: Spontaneous
  Country: FR (occurrence: FR)
  Receive Date: 20150512
  Receipt Date: 20150512
  Transmission Date: 20150821
  Serious: Yes (Death, Hospitalization, Other)
  Sender: FDA-Public Use
  Company Number: FR-ASTRAZENECA-2015SE43144

PATIENT
  Age: 91 Year
  Sex: Female
  Weight: 75 kg

DRUGS (14)
  1. DAFALGAN [Concomitant]
     Active Substance: ACETAMINOPHEN
     Route: 048
  2. LEXOMIL ROCHE [Suspect]
     Active Substance: BROMAZEPAM
     Dosage: NON ASTRAZENECA PRODUCT, 3 MG, THREE TIMES A DAY
     Route: 048
     Dates: end: 20150323
  3. LEXOMIL ROCHE [Suspect]
     Active Substance: BROMAZEPAM
     Dosage: NON ASTRAZENECA PRODUCT, 1.5 MG, AT NIGHT
     Route: 048
  4. ATARAX [Suspect]
     Active Substance: HYDROXYZINE\HYDROXYZINE HYDROCHLORIDE
     Indication: ANXIETY
     Route: 048
     Dates: end: 20150323
  5. RASILEZ [Suspect]
     Active Substance: ALISKIREN
     Indication: HYPERTENSION
     Route: 048
     Dates: end: 20150323
  6. FUMAFER [Concomitant]
     Active Substance: FERROUS FUMARATE
  7. OFLOCET [Suspect]
     Active Substance: OFLOXACIN
     Indication: URINARY TRACT INFECTION
     Route: 048
     Dates: end: 20150326
  8. SEROPLEX [Suspect]
     Active Substance: ESCITALOPRAM OXALATE
     Route: 048
     Dates: end: 20150323
  9. HYPERIUM [Suspect]
     Active Substance: RILMENIDINE PHOSPHATE
     Route: 048
     Dates: end: 20150323
  10. NISIS [Suspect]
     Active Substance: VALSARTAN
     Indication: HYPERTENSION
     Route: 048
     Dates: end: 20150323
  11. INEXIUM [Suspect]
     Active Substance: ESOMEPRAZOLE
     Route: 048
  12. TARDYFERON [Concomitant]
     Active Substance: FERROUS SULFATE\FOLIC ACID
     Route: 048
  13. SEROPLEX [Suspect]
     Active Substance: ESCITALOPRAM OXALATE
     Route: 048
  14. HYPERIUM [Suspect]
     Active Substance: RILMENIDINE PHOSPHATE
     Dates: start: 20150323

REACTIONS (7)
  - Spleen disorder [Unknown]
  - Sedation [Unknown]
  - Hepatosplenomegaly [Unknown]
  - Adrenomegaly [Unknown]
  - Serotonin syndrome [Fatal]
  - Torsade de pointes [Fatal]
  - Phaeochromocytoma [Unknown]

NARRATIVE: CASE EVENT DATE: 20150323
